FAERS Safety Report 6509823-6 (Version None)
Quarter: 2009Q4

REPORT INFORMATION
  Report Type: 
  Country: None (occurrence: None)
  Receive Date: 20091222
  Receipt Date: 20081230
  Transmission Date: 20100525
  Serious: Yes (Hospitalization)
  Sender: FDA-Public Use
  Company Number: US-ABBOTT-08P-163-0495150-00

PATIENT
  Age: 7 Month
  Sex: Female

DRUGS (4)
  1. OMNICEF [Suspect]
     Indication: EAR INFECTION
     Dosage: TWO TIMES A DAY FOR 5 DAYS, Q 12 HRS
     Dates: start: 20081201, end: 20081205
  2. AURALGAN [Concomitant]
     Indication: EAR INFECTION
     Dates: start: 20081201
  3. ALBUTEROL [Concomitant]
     Indication: COUGH
     Dosage: EVERY SIX HOURS, AS NEEDED
     Dates: start: 20081201
  4. ALBUTEROL [Concomitant]
     Indication: WHEEZING

REACTIONS (2)
  - ADVERSE EVENT [None]
  - EXPIRED DRUG ADMINISTERED [None]
